FAERS Safety Report 5590265-5 (Version None)
Quarter: 2008Q1

REPORT INFORMATION
  Report Type: 
  Country: None (occurrence: None)
  Receive Date: 20080114
  Receipt Date: 20080108
  Transmission Date: 20080703
  Serious: Yes (Hospitalization)
  Sender: FDA-Public Use
  Company Number: US-ASTRAZENECA-2007UW27784

PATIENT
  Age: 17 Year
  Sex: Female
  Weight: 43.2 kg

DRUGS (6)
  1. SEROQUEL [Suspect]
     Indication: BIPOLAR DISORDER
     Route: 048
  2. ORAL CONTRACEPTIVE [Concomitant]
  3. CLARITIN [Concomitant]
     Indication: ASTHMA
     Route: 048
  4. LOVENOX [Concomitant]
     Route: 058
  5. MICROGESTIN 1.5/30 [Concomitant]
     Dosage: 1 DAILY
     Route: 048
     Dates: end: 20071116
  6. DDAVP (NEEDS NO REFRIGERATION) [Concomitant]
     Indication: ENURESIS
     Route: 048

REACTIONS (3)
  - CHEST PAIN [None]
  - HAEMOPTYSIS [None]
  - PULMONARY EMBOLISM [None]
